FAERS Safety Report 16936439 (Version 2)
Quarter: 2019Q4

REPORT INFORMATION
  Report Type: Spontaneous
  Country: US (occurrence: US)
  Receive Date: 20191018
  Receipt Date: 20191105
  Transmission Date: 20200122
  Serious: No
  Sender: FDA-Public Use
  Company Number: US-HORIZON-PEN-0881-2019

PATIENT
  Age: 51 Year
  Sex: Female

DRUGS (1)
  1. PENNSAID [Suspect]
     Active Substance: DICLOFENAC SODIUM
     Indication: LIGAMENT SPRAIN
     Dosage: 2 PUMPS BID
     Route: 061
     Dates: start: 2019

REACTIONS (4)
  - Eye swelling [Unknown]
  - Eyelid rash [Unknown]
  - Off label use [Unknown]
  - Eye pruritus [Unknown]

NARRATIVE: CASE EVENT DATE: 201910
